FAERS Safety Report 19949010 (Version 1)
Quarter: 2021Q4

REPORT INFORMATION
  Report Type: Spontaneous
  Country: US (occurrence: US)
  Receive Date: 20211012
  Receipt Date: 20211012
  Transmission Date: 20220303
  Serious: Yes (Life-Threatening, Other)
  Sender: FDA-Public Use
  Company Number: None

PATIENT
  Age: 47 Year
  Sex: Male
  Weight: 73.35 kg

DRUGS (2)
  1. BAMLANIVIMAB [Suspect]
     Active Substance: BAMLANIVIMAB
     Indication: COVID-19
     Route: 041
     Dates: start: 20211012, end: 20211012
  2. ETESEVIMAB [Suspect]
     Active Substance: ETESEVIMAB
     Indication: COVID-19
     Route: 041
     Dates: start: 20211012, end: 20211012

REACTIONS (6)
  - Dizziness [None]
  - Hypotension [None]
  - Bradycardia [None]
  - Loss of consciousness [None]
  - Seizure [None]
  - Infusion related reaction [None]

NARRATIVE: CASE EVENT DATE: 20211012
